FAERS Safety Report 9415622 (Version 1)
Quarter: 2013Q3

REPORT INFORMATION
  Report Type: Report from Study
  Country: US (occurrence: US)
  Receive Date: 20130723
  Receipt Date: 20130723
  Transmission Date: 20140515
  Serious: Yes (Hospitalization)
  Sender: FDA-Public Use
  Company Number: GXBR2013US001434

PATIENT
  Age: 79 Year
  Sex: Male
  Weight: 92.7 kg

DRUGS (18)
  1. ENOXAPARIN SODIUM [Suspect]
     Indication: DEEP VEIN THROMBOSIS
     Dosage: 60 MG, BID
     Route: 058
     Dates: end: 20130625
  2. ENOXAPARIN SODIUM [Suspect]
     Dosage: 60 MG, BID
     Route: 058
     Dates: start: 201307, end: 20130716
  3. ENOXAPARIN SODIUM [Suspect]
     Dosage: 80 MG, QD
     Route: 058
     Dates: start: 20130717
  4. TAXOTERE [Suspect]
     Indication: CHEMOTHERAPY
     Dosage: UNK DF, UNK
     Dates: start: 20130621
  5. OXYCODONE [Concomitant]
     Indication: PAIN
     Dosage: 10 MG, Q2H PRN
     Route: 048
  6. SENNA-S [Concomitant]
     Indication: CONSTIPATION
     Dosage: 2 DF, BID
     Route: 048
  7. MIRALAX [Concomitant]
     Indication: CONSTIPATION
     Dosage: 17 G, QD
     Route: 048
  8. VITAMIN D3 [Concomitant]
     Indication: VITAMIN D DEFICIENCY
     Dosage: 10000 U, QD
     Route: 048
  9. SIMVASTATIN [Concomitant]
     Indication: HYPERLIPIDAEMIA
     Dosage: 40 MG, QD
     Route: 048
  10. MS CONTIN [Concomitant]
     Indication: PAIN
     Dosage: 15MG QAM AND 30MG QPM
     Route: 048
  11. POTASSIUM CHLORIDE [Concomitant]
     Indication: MINERAL SUPPLEMENTATION
     Dosage: 10 MEQ, QD
     Route: 048
  12. PROTONIX [Concomitant]
     Indication: GASTROOESOPHAGEAL REFLUX DISEASE
     Dosage: 40 MG, QD
     Route: 048
  13. VITAMIN B COMPLEX [Concomitant]
     Indication: SUPPLEMENTATION THERAPY
     Dosage: 1 DF, QD
     Route: 048
  14. COMPAZINE [Concomitant]
     Indication: NAUSEA
     Dosage: 10 MG, QID
     Route: 048
  15. OXYBUTYNIN [Concomitant]
     Indication: BLADDER SPASM
     Dosage: 5 MG, TID
     Route: 048
  16. PREDNISONE [Concomitant]
     Indication: CHEMOTHERAPY
     Dosage: 5 MG, BID
     Route: 048
  17. GABAPENTIN [Concomitant]
     Indication: NEURALGIA
     Dosage: 300 MG, TID
     Route: 048
  18. LIDODERM [Concomitant]
     Indication: PAIN
     Dosage: 1 DF,  FOR 12 HOURS DAILY
     Route: 062

REACTIONS (8)
  - Abdominal pain [Recovered/Resolved]
  - Melaena [Recovered/Resolved]
  - Neutropenia [Recovered/Resolved]
  - Urinary tract infection [Recovered/Resolved]
  - Influenza [Recovered/Resolved]
  - Diarrhoea [Unknown]
  - Asthenia [Unknown]
  - Blood urine present [Not Recovered/Not Resolved]
